FAERS Safety Report 15392815 (Version 1)
Quarter: 2018Q4

REPORT INFORMATION
  Report Type: Spontaneous
  Country: ZA (occurrence: ZA)
  Receive Date: 20180917
  Receipt Date: 20180917
  Transmission Date: 20190204
  Serious: Yes (Death)
  Sender: FDA-Public Use
  Company Number: ZA-PFIZER INC-2018284925

PATIENT
  Age: 71 Year
  Sex: Female

DRUGS (10)
  1. OLEXAR [Suspect]
     Active Substance: OLANZAPINE
     Dosage: 2.5 MG, UNK
  2. DOPAQUEL [Suspect]
     Active Substance: QUETIAPINE
     Dosage: 100 MG, UNK
  3. PROTIFAR (DIETARY SUPPLEMENT) [Suspect]
     Active Substance: DIETARY SUPPLEMENT
     Dosage: 90 POW
  4. CIPLA-SIMVASTATIN [Suspect]
     Active Substance: SIMVASTATIN
     Dosage: 20 MG, UNK
  5. KEPPRA [Suspect]
     Active Substance: LEVETIRACETAM
     Dosage: 100 MG, UNK
  6. EPANUTIN [Suspect]
     Active Substance: PHENYTOIN SODIUM
     Dosage: 100 MG, UNK
  7. DOPAQUEL [Suspect]
     Active Substance: QUETIAPINE
     Dosage: 25 MG, UNK
  8. OLEXAR [Suspect]
     Active Substance: OLANZAPINE
     Dosage: 5 MG, UNK
  9. SERDEP (SERTRALINE HYDROCHLORIDE) [Suspect]
     Active Substance: SERTRALINE HYDROCHLORIDE
     Dosage: 50 MG, UNK
  10. OLEXAR [Suspect]
     Active Substance: OLANZAPINE
     Dosage: 10 MG, UNK

REACTIONS (1)
  - Death [Fatal]

NARRATIVE: CASE EVENT DATE: 201808
